FAERS Safety Report 20235730 (Version 2)
Quarter: 2022Q1

REPORT INFORMATION
  Report Type: Spontaneous
  Country: BG (occurrence: BG)
  Receive Date: 20211228
  Receipt Date: 20220105
  Transmission Date: 20220423
  Serious: Yes (Hospitalization, Other)
  Sender: FDA-Public Use
  Company Number: BG-BIOVITRUM-2021BG12561

PATIENT
  Age: 84 Day

DRUGS (2)
  1. SYNAGIS [Suspect]
     Active Substance: PALIVIZUMAB
     Indication: Respiratory syncytial virus infection
     Route: 065
     Dates: start: 20190221
  2. SYNAGIS [Suspect]
     Active Substance: PALIVIZUMAB
     Route: 065
     Dates: start: 20190322

REACTIONS (2)
  - Respiratory syncytial virus infection [Recovered/Resolved]
  - Stenotrophomonas infection [Recovered/Resolved]
